FAERS Safety Report 9830118 (Version 2)
Quarter: 2014Q1

REPORT INFORMATION
  Report Type: Spontaneous
  Country: CA (occurrence: CA)
  Receive Date: 20140120
  Receipt Date: 20140207
  Transmission Date: 20141002
  Serious: Yes (Other)
  Sender: FDA-Public Use
  Company Number: CA-PFIZER INC-2014016866

PATIENT
  Age: 68 Year
  Sex: Male
  Weight: 74.83 kg

DRUGS (8)
  1. GABAPENTIN [Suspect]
     Dosage: 300 MG, 3X/DAY
  2. SANDOSTATIN [Suspect]
     Indication: ACROMEGALY
     Dosage: 20 MG, MONTHLY
  3. SANDOSTATIN [Suspect]
     Dosage: 30 MG, MONTHLY
  4. SANDOSTATIN [Suspect]
     Dosage: 20 MG, MONTHLY
  5. SANDOSTATIN [Suspect]
     Dosage: 30 MG, EVERY 3 WEEKS
  6. ULTRAM [Suspect]
     Dosage: 100 MG, 3X/DAY
  7. CELEBREX [Concomitant]
     Dosage: UNK
  8. PROSCAR [Concomitant]
     Indication: BENIGN PROSTATIC HYPERPLASIA
     Dosage: 5 MG/L, DAILY

REACTIONS (21)
  - Rotator cuff syndrome [Not Recovered/Not Resolved]
  - Scoliosis [Not Recovered/Not Resolved]
  - Pituitary tumour benign [Unknown]
  - Acromegaly [Not Recovered/Not Resolved]
  - Sacroiliitis [Not Recovered/Not Resolved]
  - Arthritis [Unknown]
  - Cholelithiasis [Not Recovered/Not Resolved]
  - Social avoidant behaviour [Not Recovered/Not Resolved]
  - Knee deformity [Recovered/Resolved with Sequelae]
  - Pulmonary haemorrhage [Unknown]
  - Back pain [Not Recovered/Not Resolved]
  - Fatigue [Not Recovered/Not Resolved]
  - Insomnia [Not Recovered/Not Resolved]
  - Pain [Not Recovered/Not Resolved]
  - Bone disorder [Not Recovered/Not Resolved]
  - Bone pain [Not Recovered/Not Resolved]
  - Empty sella syndrome [Not Recovered/Not Resolved]
  - Renal cyst [Unknown]
  - Sleep apnoea syndrome [Recovering/Resolving]
  - Malaise [Not Recovered/Not Resolved]
  - Musculoskeletal discomfort [Unknown]
